FAERS Safety Report 18817163 (Version 2)
Quarter: 2021Q1

REPORT INFORMATION
  Report Type: Spontaneous
  Country: US (occurrence: US)
  Receive Date: 20210201
  Receipt Date: 20210216
  Transmission Date: 20210419
  Serious: Yes (Other)
  Sender: FDA-Public Use
  Company Number: US-SERVIER-S21000594

PATIENT

DRUGS (4)
  1. BENADRYL [Concomitant]
     Active Substance: DIPHENHYDRAMINE HYDROCHLORIDE
     Indication: PREMEDICATION
     Dosage: 50 MG, ONE DOSE
     Route: 048
     Dates: start: 20210122, end: 20210122
  2. ONCASPAR [Suspect]
     Active Substance: PEGASPARGASE
     Indication: ACUTE LYMPHOCYTIC LEUKAEMIA
     Dosage: UNK
     Route: 042
     Dates: start: 20201207, end: 20201207
  3. TN UNSPECIFIED [FAMOTIDINE] [Concomitant]
     Active Substance: FAMOTIDINE
     Indication: PREMEDICATION
     Dosage: 20 MG, ONE DOSE
     Route: 042
     Dates: start: 20210122, end: 20210122
  4. ONCASPAR [Suspect]
     Active Substance: PEGASPARGASE
     Dosage: 4500 IU, ONE DOSE
     Route: 042
     Dates: start: 20210122, end: 20210122

REACTIONS (1)
  - Hypersensitivity [Recovered/Resolved with Sequelae]

NARRATIVE: CASE EVENT DATE: 20210122
